FAERS Safety Report 6641573-8 (Version None)
Quarter: 2010Q1

REPORT INFORMATION
  Report Type: 
  Country: None (occurrence: None)
  Receive Date: 20100317
  Receipt Date: 20100317
  Transmission Date: 20100710
  Serious: Yes (Other)
  Sender: FDA-Public Use
  Company Number: None

PATIENT
  Age: 51 Year
  Sex: Male
  Weight: 74.8 kg

DRUGS (12)
  1. INSULIN, ASPART [Suspect]
     Dosage: 18 UNITS SSI-M SQ
     Route: 058
     Dates: start: 20100120
  2. INSULIN, GLARGINE [Suspect]
     Dosage: 20 UNITS QHS SQ
     Route: 058
     Dates: start: 20100106
  3. ASPIRIN [Concomitant]
  4. AZATHIOPRINE [Concomitant]
  5. CARVEDILOL [Concomitant]
  6. CYCLOSPORINE [Concomitant]
  7. ASPART [Concomitant]
  8. PIPERACILLIN [Concomitant]
  9. TAZOBACTAM [Concomitant]
  10. PREDNISONE TAB [Concomitant]
  11. RANITIDINE [Concomitant]
  12. VANCOMYCIN [Concomitant]

REACTIONS (1)
  - BLOOD GLUCOSE DECREASED [None]
